FAERS Safety Report 10061565 (Version 1)
Quarter: 2014Q2

REPORT INFORMATION
  Report Type: Report from Study
  Country: US (occurrence: US)
  Receive Date: 20140407
  Receipt Date: 20140407
  Transmission Date: 20141212
  Serious: Yes (Congenital Anomaly)
  Sender: FDA-Public Use
  Company Number: US-ROCHE-1375195

PATIENT
  Age: 43 Year
  Sex: Female
  Weight: 46.4 kg

DRUGS (5)
  1. NAPROXEN [Suspect]
     Indication: PAIN
     Route: 048
     Dates: start: 201307
  2. RANITIDINE [Concomitant]
     Route: 065
  3. DOXYCYCLINE [Concomitant]
     Route: 065
  4. SINGULAIR [Concomitant]
     Route: 065
  5. ALLEGRA [Concomitant]
     Route: 065

REACTIONS (2)
  - Urticaria [Not Recovered/Not Resolved]
  - Drug hypersensitivity [Unknown]
